FAERS Safety Report 18907970 (Version 1)
Quarter: 2021Q1

REPORT INFORMATION
  Report Type: Spontaneous
  Country: GB (occurrence: GB)
  Receive Date: 20210218
  Receipt Date: 20210218
  Transmission Date: 20210420
  Serious: No
  Sender: FDA-Public Use
  Company Number: GB-ALKEM LABORATORIES LIMITED-GB-ALKEM-2020-00425

PATIENT
  Age: 48 Year
  Sex: Female
  Weight: 102 kg

DRUGS (22)
  1. PREDNISOLONE. [Concomitant]
     Active Substance: PREDNISOLONE
     Indication: ILL-DEFINED DISORDER
     Dosage: 6 EVERY DAY
     Route: 065
     Dates: start: 20191223, end: 20191228
  2. TOPIRAMATE. [Concomitant]
     Active Substance: TOPIRAMATE
     Indication: ILL-DEFINED DISORDER
     Dosage: TAKE 2 AT NIGHT
     Route: 065
     Dates: start: 20180906
  3. TEGRETOL [Concomitant]
     Active Substance: CARBAMAZEPINE
     Indication: ILL-DEFINED DISORDER
     Dosage: TAKE ONE, TWICE A DAY
     Route: 065
     Dates: start: 20180906
  4. HYOSCINE BUTYLBROMIDE [Concomitant]
     Active Substance: BUTYLSCOPOLAMINE BROMIDE
     Indication: ILL-DEFINED DISORDER
     Dosage: TAKE TWO 4 TIMES/DAY
     Route: 065
     Dates: start: 20200127, end: 20200203
  5. MIRTAZAPINE. [Concomitant]
     Active Substance: MIRTAZAPINE
     Indication: ILL-DEFINED DISORDER
     Dosage: EVERY DAY
     Route: 065
     Dates: start: 20181214
  6. CEPHALEXIN. [Suspect]
     Active Substance: CEPHALEXIN
     Indication: PRODUCT USED FOR UNKNOWN INDICATION
     Dosage: UNKNOWN
     Route: 065
     Dates: start: 20191205
  7. DOCUSATE SODIUM. [Concomitant]
     Active Substance: DOCUSATE SODIUM
     Indication: ILL-DEFINED DISORDER
     Dosage: TAKE ONE AT NIGHT
     Route: 065
     Dates: start: 20181025
  8. LEVETIRACETAM. [Concomitant]
     Active Substance: LEVETIRACETAM
     Indication: ILL-DEFINED DISORDER
     Dosage: TAKE ONE TWICE A DAY
     Route: 065
     Dates: start: 20191107
  9. NITROFURANTOIN. [Concomitant]
     Active Substance: NITROFURANTOIN
     Indication: ILL-DEFINED DISORDER
     Dosage: TAKE ONE TWICE DAILY
     Route: 065
     Dates: start: 20200127, end: 20200203
  10. OMEPRAZOLE. [Concomitant]
     Active Substance: OMEPRAZOLE
     Indication: ILL-DEFINED DISORDER
     Dosage: TAKE ONE, TWICE DAILY, BEFORE BREAKFAST AND EVE...
     Route: 065
     Dates: start: 20180906
  11. SALBUTAMOL [Concomitant]
     Active Substance: ALBUTEROL
     Indication: ILL-DEFINED DISORDER
     Dosage: INHALE 2 DOSES AS NEEDED
     Route: 065
     Dates: start: 20180906
  12. AMITRIPTYLINE HYDROCHLORIDE. [Concomitant]
     Active Substance: AMITRIPTYLINE HYDROCHLORIDE
     Indication: ILL-DEFINED DISORDER
     Dosage: TAKE 3 AT NIGHT
     Route: 065
     Dates: start: 20180906
  13. FOLIC ACID. [Concomitant]
     Active Substance: FOLIC ACID
     Indication: ILL-DEFINED DISORDER
     Dosage: TAKE ONE DAILY
     Route: 065
     Dates: start: 20191227
  14. FOSTAIR [Concomitant]
     Active Substance: BECLOMETHASONE\FORMOTEROL
     Indication: ILL-DEFINED DISORDER
     Dosage: TWO PUFFS TWICE DAILY
     Route: 065
     Dates: start: 20180906
  15. FULTIUM D3 [Concomitant]
     Active Substance: CHOLECALCIFEROL
     Indication: ILL-DEFINED DISORDER
     Dosage: TAKE TWO DAILY
     Route: 065
     Dates: start: 20180906
  16. PHYLLOCONTIN [Concomitant]
     Active Substance: AMINOPHYLLINE
     Indication: ILL-DEFINED DISORDER
     Dosage: TAKE ONE, TWICE A DAY
     Route: 065
     Dates: start: 20191107
  17. PREGABALIN. [Concomitant]
     Active Substance: PREGABALIN
     Indication: ILL-DEFINED DISORDER
     Dosage: TAKE ONE, 3 TIMES A DAY
     Route: 065
     Dates: start: 20180906, end: 20200124
  18. ACIDEX [Concomitant]
     Indication: ILL-DEFINED DISORDER
     Dosage: 10?20ML FOUR TIMES A DAY
     Route: 065
     Dates: start: 20180906
  19. DOXYCYCLINE. [Concomitant]
     Active Substance: DOXYCYCLINE
     Indication: ILL-DEFINED DISORDER
     Dosage: TWO NOW THEN ONE DAILY
     Route: 065
     Dates: start: 20191223, end: 20191230
  20. BRALTUS [Concomitant]
     Active Substance: TIOTROPIUM BROMIDE
     Indication: ILL-DEFINED DISORDER
     Dosage: INHALE 1 DOSE ONCE DAILY
     Route: 065
     Dates: start: 20180906
  21. LACTULOSE. [Concomitant]
     Active Substance: LACTULOSE
     Indication: ILL-DEFINED DISORDER
     Dosage: 15ML TWICE DAILY
     Route: 065
     Dates: start: 20181025
  22. PHENYTOIN SODIUM. [Concomitant]
     Active Substance: PHENYTOIN SODIUM
     Indication: ILL-DEFINED DISORDER
     Dosage: 1 TO BE TAKEN TWICE DAILY
     Route: 065
     Dates: start: 20200124

REACTIONS (1)
  - Nausea [Recovered/Resolved]

NARRATIVE: CASE EVENT DATE: 20200204
